FAERS Safety Report 20319263 (Version 17)
Quarter: 2025Q4

REPORT INFORMATION
  Report Type: Report from Study
  Country: US (occurrence: US)
  Receive Date: 20220110
  Receipt Date: 20251229
  Transmission Date: 20260119
  Serious: Yes (Hospitalization, Other)
  Sender: PFIZER
  Company Number: US-PFIZER INC-202101353507

PATIENT
  Age: 72 Year
  Sex: Female
  Weight: 81.633 kg

DRUGS (9)
  1. CELONTIN [Suspect]
     Active Substance: METHSUXIMIDE
     Indication: Seizure
     Dosage: 300 MG, 1X/DAY (1 AT 8 AM)
     Route: 048
     Dates: start: 1990, end: 20211015
  2. CELONTIN [Suspect]
     Active Substance: METHSUXIMIDE
     Dosage: 300 MG, 1X/DAY
     Route: 048
  3. CELONTIN [Suspect]
     Active Substance: METHSUXIMIDE
     Dosage: 300 MG, DAILY
     Route: 048
  4. PRIMIDONE [Concomitant]
     Active Substance: PRIMIDONE
     Indication: Epilepsy
     Dosage: UNK
     Dates: start: 1969
  5. PRIMIDONE [Concomitant]
     Active Substance: PRIMIDONE
     Dosage: 250MG TABLET THREE TIMES A DAY
     Route: 048
     Dates: start: 1980
  6. NEURONTIN [Concomitant]
     Active Substance: GABAPENTIN
     Dosage: UNK
     Dates: start: 1990
  7. PHENOBARBITAL [Concomitant]
     Active Substance: PHENOBARBITAL
     Dosage: UNK
     Dates: start: 1967
  8. GABAPENTIN [Concomitant]
     Active Substance: GABAPENTIN
     Indication: Epilepsy
     Dosage: 400 MG, 3X/DAY (100 MG CAPSULE, 4 CAPSULES THREE TIMES A DAY
     Route: 048
  9. GABAPENTIN [Concomitant]
     Active Substance: GABAPENTIN
     Indication: Back disorder

REACTIONS (12)
  - Cerebrovascular accident [Not Recovered/Not Resolved]
  - Spinal operation [Unknown]
  - Hip arthroplasty [Unknown]
  - Monoplegia [Unknown]
  - Impaired driving ability [Unknown]
  - Loss of personal independence in daily activities [Unknown]
  - Asthenia [Unknown]
  - Asthma [Unknown]
  - Blood cholesterol increased [Unknown]
  - Gait disturbance [Recovering/Resolving]
  - Dysgraphia [Unknown]
  - Product prescribing error [Unknown]

NARRATIVE: CASE EVENT DATE: 20220101
